FAERS Safety Report 7884562-8 (Version None)
Quarter: 2011Q4

REPORT INFORMATION
  Report Type: 
  Country: None (occurrence: None)
  Receive Date: 20111102
  Receipt Date: 20111024
  Transmission Date: 20120403
  Serious: Yes (Hospitalization, Other)
  Sender: FDA-Public Use
  Company Number: US-BRISTOL-MYERS SQUIBB COMPANY-16189417

PATIENT
  Age: 54 Year
  Sex: Male
  Weight: 60 kg

DRUGS (1)
  1. SUSTIVA [Suspect]
     Indication: HIV INFECTION

REACTIONS (2)
  - DYSPHAGIA [None]
  - NERVOUS SYSTEM DISORDER [None]
